FAERS Safety Report 6013219-3 (Version None)
Quarter: 2008Q4

REPORT INFORMATION
  Report Type: 
  Country: None (occurrence: None)
  Receive Date: 20081219
  Receipt Date: 20081211
  Transmission Date: 20090506
  Serious: Yes (Hospitalization)
  Sender: FDA-Public Use
  Company Number: DK-TEVA-182434ISR

PATIENT
  Sex: Male
  Weight: 84 kg

DRUGS (14)
  1. FOLINIC ACID [Suspect]
     Indication: COLORECTAL CANCER
     Route: 040
     Dates: start: 20081118, end: 20081118
  2. FOLINIC ACID [Suspect]
     Route: 041
     Dates: start: 20081118, end: 20081120
  3. OXALIPLATIN [Suspect]
     Indication: COLORECTAL CANCER
     Route: 042
     Dates: start: 20081118, end: 20081118
  4. FLUOROURACIL [Suspect]
     Indication: COLORECTAL CANCER
     Dates: start: 20081118, end: 20081120
  5. SU-011,248 (SUNITINIB MALATE) [Suspect]
     Indication: COLORECTAL CANCER
     Route: 048
     Dates: start: 20081104, end: 20081125
  6. CYANOCOBALAMIN [Concomitant]
     Dates: start: 20070627
  7. FUROSEMIDE [Concomitant]
     Dates: start: 20070627
  8. ACETYLSALICYLIC ACID [Concomitant]
     Dates: start: 20010412
  9. METOPROLOL [Concomitant]
     Dates: start: 20080627
  10. TRANDOLAPRIL [Concomitant]
     Dates: start: 20010415
  11. TOLBUTAMIDE [Concomitant]
     Dates: start: 20010301
  12. DIPYRIDAMOLE [Concomitant]
     Dates: start: 20070406
  13. SIMVASTATIN [Concomitant]
     Dates: start: 20080627
  14. GLIMEPIRIDE [Concomitant]
     Dates: start: 20070406

REACTIONS (1)
  - FEBRILE NEUTROPENIA [None]
